FAERS Safety Report 5960735-6 (Version None)
Quarter: 2008Q4

REPORT INFORMATION
  Report Type: 
  Country: None (occurrence: None)
  Receive Date: 20081120
  Receipt Date: 20081106
  Transmission Date: 20090506
  Serious: Yes (Other)
  Sender: FDA-Public Use
  Company Number: US-PFIZER INC-2008086482

PATIENT
  Sex: Male
  Weight: 80 kg

DRUGS (1)
  1. SOLU-MEDROL [Suspect]
     Indication: IDIOPATHIC URTICARIA
     Route: 042

REACTIONS (9)
  - ANAPHYLACTIC REACTION [None]
  - ANXIETY [None]
  - BRONCHOSPASM [None]
  - CHEST PAIN [None]
  - COUGH [None]
  - DYSPNOEA [None]
  - HYPERHIDROSIS [None]
  - TACHYCARDIA [None]
  - URTICARIA [None]
